FAERS Safety Report 9664747 (Version 1)
Quarter: 2013Q4

REPORT INFORMATION
  Report Type: Spontaneous
  Country: FR (occurrence: FR)
  Receive Date: 20131101
  Receipt Date: 20131101
  Transmission Date: 20140711
  Serious: Yes (Other)
  Sender: FDA-Public Use
  Company Number: FR-WATSON-2013-19703

PATIENT
  Age: 17 Year
  Sex: Female

DRUGS (7)
  1. LAMOTRIGINE [Suspect]
     Indication: PRODUCT USED FOR UNKNOWN INDICATION
     Route: 048
  2. SODIUM VALPROATE (UNKNOWN) [Suspect]
     Indication: PRODUCT USED FOR UNKNOWN INDICATION
     Dosage: VARIABLE POSOLOGY
     Route: 042
     Dates: start: 20130630, end: 20130705
  3. PRODILANTIN [Suspect]
     Indication: PRODUCT USED FOR UNKNOWN INDICATION
     Dosage: UNK, UNK
     Route: 042
     Dates: end: 20130724
  4. PRODILANTIN [Suspect]
     Dosage: UNK, UNK
     Route: 041
     Dates: start: 20130626, end: 20130628
  5. VALIUM /00017001/ [Suspect]
     Indication: PRODUCT USED FOR UNKNOWN INDICATION
     Dosage: VARIABLE POSOLOGY
     Route: 065
     Dates: start: 20130626, end: 20130725
  6. DI-HYDAN [Suspect]
     Indication: PRODUCT USED FOR UNKNOWN INDICATION
     Dosage: VARIABLE POSOLOGY
     Route: 065
     Dates: start: 20130703, end: 20130725
  7. URBANYL [Suspect]
     Indication: PRODUCT USED FOR UNKNOWN INDICATION
     Dosage: UNK, UNK
     Route: 065
     Dates: start: 20130703, end: 20130705

REACTIONS (2)
  - Rash morbilliform [Recovering/Resolving]
  - Face oedema [Recovering/Resolving]
